FAERS Safety Report 18884185 (Version 1)
Quarter: 2021Q1

REPORT INFORMATION
  Report Type: Other
  Country: US (occurrence: US)
  Receive Date: 20210211
  Receipt Date: 20210211
  Transmission Date: 20210420
  Serious: Yes (Other)
  Sender: FDA-Public Use
  Company Number: US-ROCHE-2666303

PATIENT
  Age: 66 Year
  Sex: Male
  Weight: 74.46 kg

DRUGS (22)
  1. RAMIPRIL. [Concomitant]
     Active Substance: RAMIPRIL
     Indication: HYPERTENSION
     Dosage: ONGOING: YES
     Route: 048
  2. GABAPENTIN. [Suspect]
     Active Substance: GABAPENTIN
     Indication: TREMOR
     Dosage: 1 CAPSULE IN THE AFTERNOON
     Route: 048
  3. BACLOFEN. [Concomitant]
     Active Substance: BACLOFEN
     Dosage: IN THE EVENING
  4. BABY ASPIRIN [Concomitant]
     Active Substance: ASPIRIN
     Dosage: ONGOING: YES
     Route: 048
  5. MODAFINIL. [Concomitant]
     Active Substance: MODAFINIL
     Route: 048
     Dates: start: 20200923
  6. ASPIRIN. [Concomitant]
     Active Substance: ASPIRIN
     Route: 048
  7. BACLOFEN. [Concomitant]
     Active Substance: BACLOFEN
     Indication: TREMOR
     Dosage: TAKES 1 PILL IN MORNING, AND 2 PILLS AT NIGHT ; AT BED TIME ONGOING: YES
     Route: 048
     Dates: start: 20180802
  8. BACLOFEN. [Concomitant]
     Active Substance: BACLOFEN
     Indication: RESTLESS LEGS SYNDROME
     Dosage: TAKE 1 TABLET THREE TIMES A DAY AND 3 TABLET AT BED TIME
     Route: 048
     Dates: start: 20190802
  9. MODAFINIL. [Concomitant]
     Active Substance: MODAFINIL
     Indication: FATIGUE
     Dosage: TAKE 1 TABLET BY ORAL ROUTE ONCE A DAY IN THE MORNING AND TAKE 1/2 TABLET BY ORAL ROUTE IN THE AFTER
     Route: 048
     Dates: start: 20200727
  10. OCREVUS [Suspect]
     Active Substance: OCRELIZUMAB
     Route: 042
     Dates: start: 202007
  11. OCREVUS [Suspect]
     Active Substance: OCRELIZUMAB
     Indication: RELAPSING MULTIPLE SCLEROSIS
     Route: 042
  12. BACLOFEN. [Concomitant]
     Active Substance: BACLOFEN
     Dosage: IN THE MORNING
  13. CALCIUM [Concomitant]
     Active Substance: CALCIUM
     Dosage: ONGOING: YES
     Route: 048
  14. KEPPRA XR [Concomitant]
     Active Substance: LEVETIRACETAM
     Indication: SEIZURE
     Dosage: 4, 500 MG TABLETS ONE TIME DAILY   DATE OF TREATMENT: 30/JUN/2020
     Route: 048
     Dates: start: 20191127
  15. AMANTADINE. [Suspect]
     Active Substance: AMANTADINE HYDROCHLORIDE
     Indication: FATIGUE
     Route: 048
  16. RAMIPRIL. [Concomitant]
     Active Substance: RAMIPRIL
     Route: 048
  17. VITAMIN D3 [Concomitant]
     Active Substance: CHOLECALCIFEROL
     Indication: MULTIPLE SCLEROSIS
     Dosage: 2, 2,000 IU TABLETS BY MOUTH DAILY
     Route: 048
     Dates: start: 20180719
  18. OCREVUS [Suspect]
     Active Substance: OCRELIZUMAB
     Indication: MULTIPLE SCLEROSIS
     Dosage: DATE OF TREATMENT: 09/JUL/2020,
     Route: 042
     Dates: start: 2017, end: 202007
  19. GABAPENTIN. [Suspect]
     Active Substance: GABAPENTIN
     Indication: DYSKINESIA
     Dosage: 1 TAB IN MORNING AND BEFORE BED
     Route: 048
     Dates: start: 20210106
  20. ZETIA [Concomitant]
     Active Substance: EZETIMIBE
     Indication: BLOOD CHOLESTEROL INCREASED
     Dosage: ONGOING: YES
     Route: 048
  21. FISH, FLAX, BORAGE [Concomitant]
     Dosage: 400?400?200 MG
     Route: 048
  22. CALCIUM PLUS VITAMIN D3 [Concomitant]
     Route: 048

REACTIONS (17)
  - Hypotension [Recovering/Resolving]
  - Drug ineffective [Unknown]
  - Bone contusion [Recovered/Resolved]
  - Increased appetite [Not Recovered/Not Resolved]
  - Hypoacusis [Unknown]
  - Gait disturbance [Not Recovered/Not Resolved]
  - Movement disorder [Unknown]
  - Anal incontinence [Unknown]
  - Condition aggravated [Unknown]
  - Magnetic resonance imaging abnormal [Not Recovered/Not Resolved]
  - Memory impairment [Not Recovered/Not Resolved]
  - Concussion [Recovered/Resolved]
  - Urinary incontinence [Unknown]
  - Muscular weakness [Not Recovered/Not Resolved]
  - Nephrolithiasis [Unknown]
  - Fall [Unknown]
  - Joint injury [Recovered/Resolved]

NARRATIVE: CASE EVENT DATE: 202004
